FAERS Safety Report 13679662 (Version 35)
Quarter: 2022Q1

REPORT INFORMATION
  Report Type: Spontaneous
  Country: FR (occurrence: FR)
  Receive Date: 20170622
  Receipt Date: 20220126
  Transmission Date: 20220423
  Serious: Yes (Death, Hospitalization, Other)
  Sender: FDA-Public Use
  Company Number: FR-TAKEDA-2017TEU002474

PATIENT
  Age: 71 Year
  Sex: Male
  Weight: 113.4 kg

DRUGS (47)
  1. DAPTOMYCIN [Suspect]
     Active Substance: DAPTOMYCIN
     Indication: Chest scan
     Dosage: 800 MG, 1X/DAY
     Route: 042
     Dates: start: 20170110
  2. DAPTOMYCIN [Suspect]
     Active Substance: DAPTOMYCIN
     Indication: Skin infection
     Dosage: 800 MG, 1X/DAY
     Route: 042
     Dates: start: 20170110, end: 20170201
  3. LINEZOLID [Suspect]
     Active Substance: LINEZOLID
     Indication: Skin infection
     Dosage: 600 MG, BID
     Route: 048
     Dates: start: 20161222, end: 20170110
  4. LINEZOLID [Suspect]
     Active Substance: LINEZOLID
     Indication: Chest scan
  5. PANTOPRAZOLE [Suspect]
     Active Substance: PANTOPRAZOLE
     Indication: Chest scan
     Dosage: UNK
     Route: 042
     Dates: start: 20161225, end: 20170119
  6. PANTOPRAZOLE [Suspect]
     Active Substance: PANTOPRAZOLE
     Indication: Skin infection
  7. PIPERACILLIN SODIUM\TAZOBACTAM SODIUM [Suspect]
     Active Substance: PIPERACILLIN SODIUM\TAZOBACTAM SODIUM
     Indication: Skin infection
     Dosage: 1 DF, 3X/DAY
     Route: 042
     Dates: start: 20161204, end: 20170130
  8. PIPERACILLIN SODIUM\TAZOBACTAM SODIUM [Suspect]
     Active Substance: PIPERACILLIN SODIUM\TAZOBACTAM SODIUM
     Indication: Chest scan
  9. LINEZOLID [Suspect]
     Active Substance: LINEZOLID
     Indication: Skin infection
     Dosage: 600 MG, 2X/DAY
     Route: 048
     Dates: start: 20161222, end: 20170110
  10. LINEZOLID [Suspect]
     Active Substance: LINEZOLID
     Indication: Chest scan
  11. ACETAMINOPHEN\TRAMADOL HYDROCHLORIDE [Suspect]
     Active Substance: ACETAMINOPHEN\TRAMADOL HYDROCHLORIDE
     Indication: Chest scan
     Dosage: 8 DF, 1X/DAY
     Route: 048
     Dates: start: 20161201, end: 20170119
  12. ACETAMINOPHEN\TRAMADOL HYDROCHLORIDE [Suspect]
     Active Substance: ACETAMINOPHEN\TRAMADOL HYDROCHLORIDE
     Indication: Skin infection
  13. RACECADOTRIL [Suspect]
     Active Substance: RACECADOTRIL
     Indication: Skin infection
     Dosage: 100 MG, TID (1 DF)
     Route: 048
     Dates: start: 20161209, end: 20170119
  14. RACECADOTRIL [Suspect]
     Active Substance: RACECADOTRIL
     Indication: Chest scan
  15. CUBICIN [Suspect]
     Active Substance: DAPTOMYCIN
     Indication: Chest scan
     Dosage: 800 MG, QD
     Route: 042
     Dates: start: 20170110, end: 20170201
  16. CUBICIN [Suspect]
     Active Substance: DAPTOMYCIN
     Indication: Skin infection
  17. VANCOMYCIN HYDROCHLORIDE [Suspect]
     Active Substance: VANCOMYCIN HYDROCHLORIDE
     Indication: Skin infection
     Dosage: UNK
     Route: 065
  18. VANCOMYCIN HYDROCHLORIDE [Suspect]
     Active Substance: VANCOMYCIN HYDROCHLORIDE
     Indication: Chest scan
  19. BUDESONIDE\FORMOTEROL FUMARATE [Suspect]
     Active Substance: BUDESONIDE\FORMOTEROL FUMARATE
     Dosage: 1 DF, QD
     Route: 055
     Dates: start: 20161220, end: 20170119
  20. PRIMPERAN [Suspect]
     Active Substance: METOCLOPRAMIDE HYDROCHLORIDE
     Indication: Skin infection
     Dosage: 10 MG, TID (3 DF, TID (1 DF TID))
     Route: 048
     Dates: start: 20161224, end: 20170119
  21. PRIMPERAN [Suspect]
     Active Substance: METOCLOPRAMIDE HYDROCHLORIDE
     Indication: Chest scan
  22. ULTRAVIST [Suspect]
     Active Substance: IOPROMIDE
     Indication: Chest scan
     Dosage: 370 MG, UNK
     Route: 042
     Dates: start: 20170116, end: 20170116
  23. ULTRAVIST [Suspect]
     Active Substance: IOPROMIDE
     Indication: Skin infection
  24. QUESTRAN [Suspect]
     Active Substance: CHOLESTYRAMINE
     Indication: Skin infection
     Dosage: 4 G, QD
     Route: 048
     Dates: start: 20161216, end: 20170119
  25. QUESTRAN [Suspect]
     Active Substance: CHOLESTYRAMINE
     Indication: Chest scan
     Dosage: 4 G, 1X/DAY
     Route: 048
     Dates: start: 20161216, end: 20170119
  26. NEFOPAM [Suspect]
     Active Substance: NEFOPAM
     Indication: Chest scan
     Dosage: UNK
     Route: 042
     Dates: start: 20161202, end: 20170119
  27. NEFOPAM [Suspect]
     Active Substance: NEFOPAM
     Indication: Skin infection
  28. RIFADIN [Suspect]
     Active Substance: RIFAMPIN
     Indication: Skin infection
     Dosage: UNK
     Route: 065
  29. RIFADIN [Suspect]
     Active Substance: RIFAMPIN
     Indication: Chest scan
  30. RIFAMPIN [Suspect]
     Active Substance: RIFAMPIN
     Indication: Chest scan
     Dosage: UNK
  31. RIFAMPIN [Suspect]
     Active Substance: RIFAMPIN
     Indication: Skin infection
  32. METOCLOPRAMIDE HYDROCHLORIDE [Suspect]
     Active Substance: METOCLOPRAMIDE HYDROCHLORIDE
     Indication: Skin infection
     Dosage: 30 MG, 1X/DAY
     Route: 048
  33. METOCLOPRAMIDE HYDROCHLORIDE [Suspect]
     Active Substance: METOCLOPRAMIDE HYDROCHLORIDE
     Indication: Chest scan
  34. CHOLESTYRAMINE [Suspect]
     Active Substance: CHOLESTYRAMINE
     Indication: Chest scan
     Dosage: UNK
  35. CHOLESTYRAMINE [Suspect]
     Active Substance: CHOLESTYRAMINE
     Indication: Skin infection
  36. POLARAMINE [Concomitant]
     Active Substance: DEXCHLORPHENIRAMINE MALEATE
     Dosage: UNK
     Route: 065
  37. LANTUS [Concomitant]
     Active Substance: INSULIN GLARGINE
     Dosage: UNK
  38. INSULIN HUMAN [Concomitant]
     Active Substance: INSULIN HUMAN
     Dosage: UNK
  39. POTASSIUM CHLORIDE [Concomitant]
     Active Substance: POTASSIUM CHLORIDE
     Dosage: UNK
     Route: 065
  40. DUPHALAC [Concomitant]
     Active Substance: LACTULOSE
     Dosage: UNK
  41. LOPERAMIDE [Concomitant]
     Active Substance: LOPERAMIDE
     Dosage: UNK
     Route: 065
  42. KARDEGIC [Concomitant]
     Active Substance: ASPIRIN DL-LYSINE
     Dosage: UNK
     Route: 065
  43. FUROSEMIDE [Concomitant]
     Active Substance: FUROSEMIDE
     Dosage: UNK
  44. LOVENOX [Concomitant]
     Active Substance: ENOXAPARIN SODIUM
     Dosage: UNK
     Route: 065
     Dates: start: 20170114
  45. POTASSIUM CHLORIDE [Concomitant]
     Active Substance: POTASSIUM CHLORIDE
     Dosage: UNK
  46. LEVOFLOXACIN [Concomitant]
     Active Substance: LEVOFLOXACIN
     Dosage: UNK
  47. INSULIN HUMAN [Concomitant]
     Active Substance: INSULIN HUMAN
     Dosage: UNK

REACTIONS (18)
  - Death [Fatal]
  - Sepsis [Fatal]
  - Hyperammonaemia [Fatal]
  - Dyspnoea [Fatal]
  - Diffuse alveolar damage [Fatal]
  - Thrombocytopenia [Fatal]
  - Hepatic encephalopathy [Fatal]
  - Glomerular filtration rate decreased [Fatal]
  - Rectal haemorrhage [Fatal]
  - Eczema [Fatal]
  - Restlessness [Fatal]
  - Alveolar lung disease [Fatal]
  - Pulmonary interstitial emphysema syndrome [Fatal]
  - Acute kidney injury [Fatal]
  - Eosinophilia [Fatal]
  - Rash maculo-papular [Fatal]
  - Generalised oedema [Fatal]
  - Eosinophilic pneumonia [Fatal]

NARRATIVE: CASE EVENT DATE: 20161227
